FAERS Safety Report 7195094-7 (Version None)
Quarter: 2010Q4

REPORT INFORMATION
  Report Type: 
  Country: None (occurrence: None)
  Receive Date: 20101223
  Receipt Date: 20101217
  Transmission Date: 20110411
  Serious: Yes (Hospitalization, Other)
  Sender: FDA-Public Use
  Company Number: GXBR2010US02121

PATIENT
  Sex: Female
  Weight: 52.154 kg

DRUGS (5)
  1. METHOTREXATE SODIUM [Suspect]
     Dosage: 510 MG, UNK
     Dates: start: 20100731
  2. METHOTREXATE SODIUM [Suspect]
     Dosage: 800 MG, UNK
     Dates: start: 20101006, end: 20101006
  3. ETOPOSIDE [Concomitant]
     Indication: CHORIOCARCINOMA
     Dosage: UNK
     Dates: start: 20100701
  4. DACTINOMYCIN [Concomitant]
     Indication: CHORIOCARCINOMA
     Dosage: UNK
     Dates: start: 20100701
  5. LEUCOVORIN [Concomitant]
     Indication: CHORIOCARCINOMA
     Dosage: UNK
     Dates: start: 20100701

REACTIONS (4)
  - ACUTE RESPIRATORY DISTRESS SYNDROME [None]
  - ENDOTRACHEAL INTUBATION [None]
  - HAEMOPTYSIS [None]
  - PNEUMOTHORAX [None]
